FAERS Safety Report 9227361 (Version 1)
Quarter: 2013Q2

REPORT INFORMATION
  Report Type: Spontaneous
  Country: US (occurrence: None)
  Receive Date: 20130411
  Receipt Date: 20130411
  Transmission Date: 20140414
  Serious: Yes (Hospitalization)
  Sender: FDA-Public Use
  Company Number: None

PATIENT
  Age: 66 Year
  Sex: Female
  Weight: 90.9 kg

DRUGS (8)
  1. MELOXICAM [Suspect]
     Indication: ARTHRITIS
     Dosage: CHRONIC 50MG DAILY PO
     Route: 048
  2. ALKA SELTZER [Suspect]
     Dosage: CHRONIC USE 2 TABLETS DAILY PO
     Route: 048
  3. ADVIL [Suspect]
     Indication: ARTHRITIS
     Dosage: CHRONIC USE
  4. LISINOPRIL [Concomitant]
  5. CHLOROTHIADONE [Concomitant]
  6. ESTRADIOL PATCH [Concomitant]
  7. VIT C [Concomitant]
  8. VIT E [Concomitant]

REACTIONS (1)
  - Gastric ulcer [None]
